FAERS Safety Report 5764742-8 (Version None)
Quarter: 2008Q2

REPORT INFORMATION
  Report Type: 
  Country: None (occurrence: None)
  Receive Date: 20080611
  Receipt Date: 20080604
  Transmission Date: 20081010
  Serious: Yes (Other)
  Sender: FDA-Public Use
  Company Number: GB-MERCK-0806GBR00029

PATIENT
  Age: 7 Year
  Sex: Male

DRUGS (3)
  1. SINGULAIR [Suspect]
     Indication: ASTHMA
     Route: 048
     Dates: start: 20070101
  2. SALMETEROL XINAFOATE [Concomitant]
     Route: 065
  3. BECLOMETHASONE DIPROPIONATE [Concomitant]
     Route: 065

REACTIONS (3)
  - ABNORMAL BEHAVIOUR [None]
  - DEPRESSED MOOD [None]
  - SUICIDAL IDEATION [None]
